FAERS Safety Report 17240904 (Version 1)
Quarter: 2020Q1

REPORT INFORMATION
  Report Type: Spontaneous
  Country: MW (occurrence: MW)
  Receive Date: 20200107
  Receipt Date: 20200107
  Transmission Date: 20200409
  Serious: Yes (Disabling, Other)
  Sender: FDA-Public Use
  Company Number: MW-SCIEGEN PHARMACEUTICALS INC-2019SCILIT00407

PATIENT
  Age: 16 Year
  Sex: Male

DRUGS (5)
  1. NEVIRAPINE TABLETS [Suspect]
     Active Substance: NEVIRAPINE
  2. COTRIMOXAZOLE [Suspect]
     Active Substance: SULFAMETHOXAZOLE\TRIMETHOPRIM
  3. VITAMIN A [Interacting]
     Active Substance: VITAMIN A
  4. VITAMIN A [Interacting]
     Active Substance: VITAMIN A
  5. OFLAOXACIN [Interacting]
     Active Substance: OFLOXACIN

REACTIONS (3)
  - Blindness [Recovering/Resolving]
  - Dry eye [Recovering/Resolving]
  - Ulcerative keratitis [Recovering/Resolving]
